FAERS Safety Report 5261146-1 (Version None)
Quarter: 2007Q1

REPORT INFORMATION
  Report Type: 
  Country: None (occurrence: None)
  Receive Date: 20070309
  Receipt Date: 20070228
  Transmission Date: 20070707
  Serious: Yes (Hospitalization, Other)
  Sender: FDA-Public Use
  Company Number: FR-PFIZER INC-2006144519

PATIENT
  Age: 65 Year
  Sex: Female

DRUGS (3)
  1. LYRICA [Suspect]
     Indication: DEPRESSION
  2. TEGRETOL [Concomitant]
  3. TRANXENE [Concomitant]

REACTIONS (10)
  - ANOREXIA [None]
  - BALANCE DISORDER [None]
  - CONSTIPATION [None]
  - DISTURBANCE IN ATTENTION [None]
  - FATIGUE [None]
  - FEELING DRUNK [None]
  - FLATULENCE [None]
  - INSOMNIA [None]
  - SEPSIS [None]
  - THIRST DECREASED [None]
